FAERS Safety Report 20636188 (Version 4)
Quarter: 2022Q3

REPORT INFORMATION
  Report Type: Spontaneous
  Country: JP (occurrence: JP)
  Receive Date: 20220325
  Receipt Date: 20220809
  Transmission Date: 20221027
  Serious: No
  Sender: FDA-Public Use
  Company Number: JP-GLAXOSMITHKLINE-JP2022JPN052968

PATIENT

DRUGS (9)
  1. SOTROVIMAB [Suspect]
     Active Substance: SOTROVIMAB
     Indication: COVID-19
     Dosage: 500 MG/DAY
     Route: 042
     Dates: start: 20220317, end: 20220317
  2. CEPHALEXIN [Suspect]
     Active Substance: CEPHALEXIN
     Indication: Uterine haemorrhage
     Dosage: 750 MG/DAY
     Route: 048
     Dates: start: 20220316, end: 20220318
  3. RITODRINE [Suspect]
     Active Substance: RITODRINE
     Indication: Premature labour
     Dosage: 10 TO 20 MG/DAY
     Route: 048
     Dates: start: 20220316, end: 20220519
  4. DEXTROMETHORPHAN HYDROBROMIDE [Suspect]
     Active Substance: DEXTROMETHORPHAN HYDROBROMIDE
     Indication: Cough
     Dosage: 90 MG/DAY
     Route: 048
     Dates: start: 20220316, end: 20220318
  5. DEXTROMETHORPHAN HYDROBROMIDE [Suspect]
     Active Substance: DEXTROMETHORPHAN HYDROBROMIDE
     Dosage: 45 MG
     Route: 048
     Dates: start: 20220328, end: 20220426
  6. MAGNESIUM OXIDE [Suspect]
     Active Substance: MAGNESIUM OXIDE
     Indication: Constipation
     Dosage: 990 MG/DAY
     Route: 048
     Dates: start: 20220318, end: 20220331
  7. FLAGYL [Suspect]
     Active Substance: METRONIDAZOLE\METRONIDAZOLE HYDROCHLORIDE
     Indication: Uterine haemorrhage
     Dosage: 250 MG/DAY
     Route: 067
     Dates: start: 20220327, end: 20220327
  8. HERBALS [Suspect]
     Active Substance: HERBALS
     Indication: Cough
     Dosage: 9 G/DAY
     Route: 048
     Dates: start: 20220420, end: 20220426
  9. HERBALS [Suspect]
     Active Substance: HERBALS
     Dosage: 9 G
     Route: 048
     Dates: start: 20220506, end: 20220519

REACTIONS (1)
  - Exposure during pregnancy [Unknown]
